FAERS Safety Report 7691921-5 (Version None)
Quarter: 2011Q3

REPORT INFORMATION
  Report Type: 
  Country: None (occurrence: None)
  Receive Date: 20110818
  Receipt Date: 20110809
  Transmission Date: 20111222
  Serious: Yes (Hospitalization, Other)
  Sender: FDA-Public Use
  Company Number: US-ASTRAZENECA-2011SE47735

PATIENT
  Sex: Male

DRUGS (2)
  1. SIMVASTATIN [Concomitant]
  2. CRESTOR [Suspect]
     Dosage: 20 MG OR 40 MG
     Route: 048

REACTIONS (1)
  - MYOCARDIAL INFARCTION [None]
